FAERS Safety Report 5324550-9 (Version None)
Quarter: 2007Q2

REPORT INFORMATION
  Report Type: 
  Country: None (occurrence: None)
  Receive Date: 20070514
  Receipt Date: 20070502
  Transmission Date: 20071010
  Serious: Yes (Other)
  Sender: FDA-Public Use
  Company Number: FR-PFIZER INC-2007036350

PATIENT
  Age: 64 Year
  Sex: Male

DRUGS (5)
  1. LYRICA [Suspect]
     Indication: PAIN
  2. BUPRENORPHINE HCL [Concomitant]
  3. IMIPRAMINE [Concomitant]
  4. CLONAZEPAM [Concomitant]
  5. NAPROXEN [Concomitant]

REACTIONS (1)
  - PAIN [None]
